FAERS Safety Report 15983008 (Version 1)
Quarter: 2019Q1

REPORT INFORMATION
  Report Type: Spontaneous
  Country: FR (occurrence: FR)
  Receive Date: 20190219
  Receipt Date: 20190219
  Transmission Date: 20190418
  Serious: Yes (Other)
  Sender: FDA-Public Use
  Company Number: FR-ALLERGAN-1906446US

PATIENT
  Age: 30 Year
  Sex: Female

DRUGS (2)
  1. CONSTELLA [Suspect]
     Active Substance: LINACLOTIDE
     Indication: INTESTINAL OBSTRUCTION
     Dosage: 290 ?G, QAM
     Route: 048
     Dates: start: 2018
  2. LAXATIVE [Concomitant]
     Active Substance: UNSPECIFIED INGREDIENT
     Route: 065

REACTIONS (3)
  - Open angle glaucoma [Unknown]
  - Off label use [Unknown]
  - Weight increased [Unknown]
